FAERS Safety Report 5906492-0 (Version None)
Quarter: 2008Q4

REPORT INFORMATION
  Report Type: 
  Country: None (occurrence: None)
  Receive Date: 20081002
  Receipt Date: 20080930
  Transmission Date: 20090506
  Serious: Yes (Hospitalization)
  Sender: FDA-Public Use
  Company Number: JP-B.I. PHARMACEUTICALS,INC./RIDGEFIELD-2008-BP-15151NB

PATIENT
  Age: 60 Year
  Sex: Male

DRUGS (2)
  1. MICARDIS [Suspect]
     Indication: HYPERTENSION
     Dosage: 2400MG
     Route: 048
     Dates: start: 20080928, end: 20080928
  2. AMLODIN [Suspect]
     Dosage: 300MG
     Route: 048
     Dates: start: 20080928, end: 20080928

REACTIONS (2)
  - HYPOTENSION [None]
  - OVERDOSE [None]
